FAERS Safety Report 10509371 (Version 3)
Quarter: 2015Q1

REPORT INFORMATION
  Report Type: Report from Study
  Country: TR (occurrence: TR)
  Receive Date: 20141009
  Receipt Date: 20150226
  Transmission Date: 20150720
  Serious: Yes (Hospitalization, Other)
  Sender: FDA-Public Use
  Company Number: PHHY2014TR129090

PATIENT
  Age: 24 Year
  Sex: Male
  Weight: 50 kg

DRUGS (5)
  1. DESFERAL [Suspect]
     Active Substance: DEFEROXAMINE MESYLATE
     Indication: PRODUCT USED FOR UNKNOWN INDICATION
     Dosage: THREE TIMES IN A WEEK (EXCEPT THE DAYS HE RECEIVED EXJADE)
     Route: 058
     Dates: start: 201406, end: 20140925
  2. DESFERAL [Suspect]
     Active Substance: DEFEROXAMINE MESYLATE
     Dosage: THREE TIMES IN A WEEK (EXCEPT THE DAYS HE RECEIVED EXJADE)
     Route: 058
     Dates: start: 201411
  3. EXJADE [Suspect]
     Active Substance: DEFERASIROX
     Dosage: 2000 MG, QD (EXCEPT THE DAYS HE RECEIVED DESFERAL)
     Route: 048
     Dates: start: 201406, end: 20140925
  4. EXJADE [Suspect]
     Active Substance: DEFERASIROX
     Dosage: 2000 MG, QD (EXCEPT THE DAYS HE RECEIVED DESFERAL)
     Route: 048
     Dates: start: 201411
  5. EXJADE [Suspect]
     Active Substance: DEFERASIROX
     Indication: THALASSAEMIA BETA
     Dosage: 2000 MG, QD
     Route: 048
     Dates: start: 201308, end: 201406

REACTIONS (6)
  - Serum ferritin increased [Unknown]
  - Urinary tract infection [Recovering/Resolving]
  - Alanine aminotransferase increased [Recovering/Resolving]
  - Aspartate aminotransferase increased [Recovering/Resolving]
  - Pyrexia [Recovering/Resolving]
  - Off label use [Not Recovered/Not Resolved]

NARRATIVE: CASE EVENT DATE: 201406
